FAERS Safety Report 7623337-1 (Version None)
Quarter: 2011Q3

REPORT INFORMATION
  Report Type: 
  Country: None (occurrence: None)
  Receive Date: 20110720
  Receipt Date: 20110707
  Transmission Date: 20111222
  Serious: Yes (Hospitalization)
  Sender: FDA-Public Use
  Company Number: FR-JNJFOC-20110706017

PATIENT
  Sex: Female

DRUGS (13)
  1. TRAMADOL HCL [Suspect]
     Indication: SCIATICA
     Route: 048
     Dates: end: 20101208
  2. MORPHINE SULFATE [Suspect]
     Indication: SCIATICA
     Route: 048
     Dates: start: 20101201, end: 20101208
  3. ATACAND [Concomitant]
     Dosage: 1 DOSE IN THE MORNING
     Route: 065
     Dates: end: 20101208
  4. BISOPROLOL FUMARATE [Concomitant]
     Dosage: 1 DOSE IN THE MORNING
     Route: 065
     Dates: end: 20101108
  5. LYRICA [Concomitant]
     Dosage: 1 DOSE IN THE EVENING
     Route: 065
  6. FLUINDIONE [Concomitant]
     Dosage: 3/4 TABLET IN THE EVENING
     Route: 065
  7. DIGOXIN [Concomitant]
     Dosage: 1 DOSE IN THE EVENING
     Route: 065
     Dates: end: 20101208
  8. LEXOMIL [Concomitant]
     Route: 065
  9. MIANSERIN HYDROCHLORIDE [Concomitant]
     Dosage: 1 DOSE IN THE EVENING
     Route: 065
  10. XALATAN [Concomitant]
     Route: 065
  11. PANTOPRAZOLE SODIUM [Concomitant]
     Route: 065
  12. FUROSEMIDE [Concomitant]
     Dosage: 1 DOSE DAILY IN THE MORNING
     Route: 065
  13. CORDARONE [Concomitant]
     Route: 065
     Dates: end: 20101208

REACTIONS (8)
  - SPEECH DISORDER [None]
  - SOMNOLENCE [None]
  - RENAL FAILURE ACUTE [None]
  - CENTRAL NERVOUS SYSTEM LESION [None]
  - DISORIENTATION [None]
  - INCORRECT DOSE ADMINISTERED [None]
  - CEREBRAL ATROPHY [None]
  - CONFUSIONAL STATE [None]
